FAERS Safety Report 7435959-1 (Version None)
Quarter: 2011Q2

REPORT INFORMATION
  Report Type: 
  Country: None (occurrence: None)
  Receive Date: 20110418
  Receipt Date: 20110404
  Transmission Date: 20111010
  Serious: Yes (Hospitalization, Other)
  Sender: FDA-Public Use
  Company Number: 1000019053

PATIENT
  Age: 83 Year
  Sex: Female
  Weight: 57 kg

DRUGS (6)
  1. MEMANTINE [Suspect]
     Indication: DEMENTIA ALZHEIMER'S TYPE
     Dosage: 10 MG (10 MG, 1 IN 1 D), ORAL
     Route: 048
     Dates: start: 20110122
  2. DAFALGAN (PARACETAMOL) (PARACETAMOL) [Concomitant]
  3. PAROXETINE HYDROCHLORIDE [Concomitant]
  4. TANGANIL (ETHANOLAMINE ACETYLLEUCINATE) (ETHANOLAMINE ACETYLLEUCINATE) [Concomitant]
  5. ACTONEL (RISEDRONATE SODIUM) (RISEDRONATE SODIUM) [Concomitant]
  6. ARICEPT (DONEPEZIL) (10 MILLIGRAM) (DONEPEZIL) [Concomitant]

REACTIONS (11)
  - DISORIENTATION [None]
  - GAIT DISTURBANCE [None]
  - CARDIAC MURMUR [None]
  - RENAL FAILURE [None]
  - HEAD INJURY [None]
  - LACERATION [None]
  - TRANSIENT ISCHAEMIC ATTACK [None]
  - EPILEPSY [None]
  - FALL [None]
  - URINARY RETENTION [None]
  - BLOOD PRESSURE SYSTOLIC INCREASED [None]
